FAERS Safety Report 11785750 (Version 2)
Quarter: 2016Q1

REPORT INFORMATION
  Report Type: Spontaneous
  Country: US (occurrence: US)
  Receive Date: 20151130
  Receipt Date: 20160128
  Transmission Date: 20160525
  Serious: Yes (Death, Hospitalization)
  Sender: FDA-Public Use
  Company Number: US-PFIZER INC-2015255342

PATIENT
  Age: 72 Year
  Sex: Male
  Weight: 73 kg

DRUGS (26)
  1. VANTIN [Concomitant]
     Active Substance: CEFPODOXIME PROXETIL
     Indication: ANTIBIOTIC PROPHYLAXIS
     Dosage: 200 MG, 2X/DAY
     Route: 048
  2. CLOBETASOL [Concomitant]
     Active Substance: CLOBETASOL
     Indication: RASH
     Dosage: UNK, 2X/DAY
     Route: 061
  3. LANTUS [Concomitant]
     Active Substance: INSULIN GLARGINE
     Indication: DIABETES MELLITUS
     Dosage: 1 DF, 1X/DAY (8 UNIT, 1 INJECTION UNDER SKIN, EVERY MORNING)
     Route: 062
  4. VALTREX [Concomitant]
     Active Substance: VALACYCLOVIR HYDROCHLORIDE
     Dosage: 500 MG, 1X/DAY
     Route: 048
     Dates: start: 20150908
  5. ZOFRAN [Concomitant]
     Active Substance: ONDANSETRON HYDROCHLORIDE
     Indication: NAUSEA
     Dosage: 8 MG, AS NEEDED (EVERY EIGHT HOURS AS NEEDED)
     Route: 048
  6. LASIX [Concomitant]
     Active Substance: FUROSEMIDE
     Indication: FLUID RETENTION
     Dosage: 40 MG, 1X/DAY
     Route: 048
  7. HUMALOG KWIKPEN [Concomitant]
     Active Substance: INSULIN LISPRO
     Dosage: 10 IU, 3X/DAY (100 UNIT/ML)
     Route: 058
  8. LOVENOX [Concomitant]
     Active Substance: ENOXAPARIN SODIUM
     Indication: THROMBOSIS
     Dosage: 1 DF, 2X/DAY (80MG, 1 INJECTION, UNDERSKIN, TWICE A DAY)
     Route: 062
  9. HYDROCORTISONE. [Concomitant]
     Active Substance: HYDROCORTISONE
     Indication: RASH
     Dosage: 1 DF, AS NEEDED (1%, 1 APPLICATION TO AFFECTED AREA, TWICE A DAY AS NEEDED)
  10. LOPRESSOR [Concomitant]
     Active Substance: METOPROLOL TARTRATE
     Indication: BLOOD PRESSURE MEASUREMENT
     Dosage: 0.5 DF, 2X/DAY (25MG, 0.5 TABLET, BY MOUTH, TWICE A DAY)
     Route: 048
  11. TRIAMCINOLONE [Concomitant]
     Active Substance: TRIAMCINOLONE
     Indication: RASH
     Dosage: 1 DF, 3X/DAY (0.1%, 1 APPLICATION TO AFFECTED AREA)
     Route: 061
  12. IMODIUM [Concomitant]
     Active Substance: LOPERAMIDE HYDROCHLORIDE
     Indication: DIARRHOEA
     Dosage: 2 MG, EVERY 4 HRS
     Route: 048
  13. MAGNESIUM PLUS PROTEIN [Concomitant]
     Indication: MINERAL SUPPLEMENTATION
     Dosage: 266 MG, 2X/DAY (TAKE WITH MEALS. HOLD FOR DIARRHEA/LOOSE STOOLS)
     Route: 048
  14. ULTRAM [Concomitant]
     Active Substance: TRAMADOL HYDROCHLORIDE
     Indication: PAIN
     Dosage: 50 MG, AS NEEDED (EVERY SIX HOURS AS NEEDED)
     Route: 048
  15. PREDNISONE. [Concomitant]
     Active Substance: PREDNISONE
     Indication: GRAFT VERSUS HOST DISEASE
     Dosage: 80 MG, 2X/DAY (10MG, 8 TABLET ORAL, TWICE A DAY)
     Route: 048
  16. PENTAM [Concomitant]
     Active Substance: PENTAMIDINE ISETHIONATE
     Indication: ANTIFUNGAL PROPHYLAXIS
     Dosage: 1 DF, CYCLIC (360MG, 1 INFUSION, EVETY 21DAYS)
     Route: 042
     Dates: end: 20151027
  17. VALTREX [Concomitant]
     Active Substance: VALACYCLOVIR HYDROCHLORIDE
     Indication: INFECTION PROPHYLAXIS
     Dosage: 500 MG, 1X/DAY
     Route: 048
  18. ZOFRAN [Concomitant]
     Active Substance: ONDANSETRON HYDROCHLORIDE
     Indication: VOMITING
  19. GLUCOPHAGE [Concomitant]
     Active Substance: METFORMIN HYDROCHLORIDE
     Indication: DIABETES MELLITUS
     Dosage: 500 MG, 2X/DAY
     Route: 048
  20. VFEND [Suspect]
     Active Substance: VORICONAZOLE
     Indication: ASPERGILLUS INFECTION
     Dosage: 100 MG OR 200 MG, 2X/DAY
     Route: 048
     Dates: start: 20150201
  21. PROTONIX [Concomitant]
     Active Substance: PANTOPRAZOLE SODIUM
     Indication: PROPHYLAXIS AGAINST GASTROINTESTINAL ULCER
     Dosage: 40 MG, 1X/DAY
     Route: 048
  22. PREDNISONE. [Concomitant]
     Active Substance: PREDNISONE
     Dosage: 40 MG, 1X/DAY (20MG, 2 TABLET BY MOUTH EVERY MORNING)
     Route: 048
  23. IMODIUM [Concomitant]
     Active Substance: LOPERAMIDE HYDROCHLORIDE
     Indication: DIARRHOEA
  24. MAXIPIME [Concomitant]
     Active Substance: CEFEPIME HYDROCHLORIDE
     Indication: BACTERAEMIA
     Dosage: 1 DF, 3X/DAY
     Route: 042
     Dates: start: 20151028
  25. HEPARIN LOCK FLUSH [Concomitant]
     Active Substance: HEPARIN SODIUM
     Indication: CATHETER MANAGEMENT
     Dosage: 2 ML, 1X/DAY (100UNITS/ML, 2 ML ONCE A DAY)
  26. PROGRAF [Concomitant]
     Active Substance: TACROLIMUS\TACROLIMUS ANHYDROUS
     Indication: GRAFT VERSUS HOST DISEASE
     Dosage: 3 MG, 2X/DAY
     Route: 048

REACTIONS (1)
  - Acute myeloid leukaemia [Fatal]
